FAERS Safety Report 20138512 (Version 3)
Quarter: 2021Q4

REPORT INFORMATION
  Report Type: Report from Study
  Country: KR (occurrence: KR)
  Receive Date: 20211202
  Receipt Date: 20211213
  Transmission Date: 20220303
  Serious: Yes (Hospitalization, Other)
  Sender: FDA-Public Use
  Company Number: KR-CELLTRION INC.-2021KR015975

PATIENT

DRUGS (74)
  1. HERZUMA [Suspect]
     Active Substance: TRASTUZUMAB-PKRB
     Indication: Biliary cancer metastatic
     Dosage: 440MG 384 MG
     Route: 042
     Dates: start: 20210525, end: 20210525
  2. HERZUMA [Suspect]
     Active Substance: TRASTUZUMAB-PKRB
     Dosage: 440MG 384 MG
     Route: 042
     Dates: start: 20211102, end: 20211102
  3. OXALIPLATIN [Suspect]
     Active Substance: OXALIPLATIN
     Indication: Product used for unknown indication
     Dosage: 127.5 MG
     Route: 042
     Dates: start: 20210525
  4. FLUOROURACIL [Suspect]
     Active Substance: FLUOROURACIL
     Indication: Product used for unknown indication
     Dosage: 600 MG
     Route: 042
     Dates: start: 20210525
  5. FLUOROURACIL [Suspect]
     Active Substance: FLUOROURACIL
     Dosage: 3600 MG
     Route: 042
     Dates: start: 20210525
  6. FLUOROURACIL [Suspect]
     Active Substance: FLUOROURACIL
     Dosage: 600 MG
     Route: 042
     Dates: start: 20211102
  7. FLUOROURACIL [Suspect]
     Active Substance: FLUOROURACIL
     Dosage: 3600 MG
     Route: 042
     Dates: start: 20211102
  8. FLUOROURACIL [Suspect]
     Active Substance: FLUOROURACIL
     Indication: Product used for unknown indication
     Dosage: 3600 MG
     Route: 042
     Dates: start: 20210525
  9. FLUOROURACIL [Suspect]
     Active Substance: FLUOROURACIL
     Dosage: 3600 MG
     Route: 042
     Dates: start: 20211102
  10. LEUCOVORIN CALCIUM [Suspect]
     Active Substance: LEUCOVORIN CALCIUM
     Indication: Product used for unknown indication
     Dosage: 300 MG
     Route: 042
     Dates: start: 20210525
  11. LEUCOVORIN CALCIUM [Suspect]
     Active Substance: LEUCOVORIN CALCIUM
     Dosage: 300 MG
     Route: 042
     Dates: start: 20211102
  12. EDOXABAN TOSYLATE [Concomitant]
     Active Substance: EDOXABAN TOSYLATE
     Indication: Atrial fibrillation
     Dosage: 1 TAB, QD
     Route: 048
     Dates: start: 2019, end: 2020
  13. MACPERAN [METOCLOPRAMIDE] [Concomitant]
     Indication: Nausea
     Dosage: 1 TAB, PRN
     Route: 048
     Dates: start: 202102
  14. MEGACE F [Concomitant]
     Indication: Decreased appetite
     Dosage: 1 PACK, QD
     Route: 048
  15. CAFSOL [Concomitant]
     Indication: Decreased appetite
     Dosage: 500 ML, ONCE
     Route: 042
     Dates: start: 20210524, end: 20210524
  16. TAMIPOOL [VITAMINS NOS] [Concomitant]
     Indication: Decreased appetite
     Dosage: 1 VIAL, ONCE
     Route: 042
     Dates: start: 20210524, end: 20210524
  17. DEXAMETHASONE [Concomitant]
     Active Substance: DEXAMETHASONE
     Indication: Prophylaxis
     Dosage: 10 MG, ONCE
     Route: 042
     Dates: start: 20210525, end: 20210525
  18. DEXAMETHASONE [Concomitant]
     Active Substance: DEXAMETHASONE
     Dosage: 10 MG, ONCE
     Route: 042
     Dates: start: 20210608, end: 20210608
  19. DEXAMETHASONE [Concomitant]
     Active Substance: DEXAMETHASONE
     Dosage: 10 MG, ONCE
     Route: 042
     Dates: start: 20210622, end: 20210622
  20. DEXAMETHASONE [Concomitant]
     Active Substance: DEXAMETHASONE
     Dosage: 10 MG, ONCE
     Route: 042
     Dates: start: 20210706, end: 20210706
  21. DEXAMETHASONE [Concomitant]
     Active Substance: DEXAMETHASONE
     Dosage: 10 MG, ONCE
     Route: 042
     Dates: start: 20210720, end: 20210720
  22. DEXAMETHASONE [Concomitant]
     Active Substance: DEXAMETHASONE
     Dosage: 10 MG, ONCE
     Route: 042
     Dates: start: 20210803, end: 20210803
  23. DEXAMETHASONE [Concomitant]
     Active Substance: DEXAMETHASONE
     Dosage: 10 MG, ONCE
     Route: 042
     Dates: start: 20210817, end: 20210817
  24. DEXAMETHASONE [Concomitant]
     Active Substance: DEXAMETHASONE
     Dosage: 10 MG, ONCE
     Route: 042
     Dates: start: 20210831, end: 20210831
  25. DEXAMETHASONE [Concomitant]
     Active Substance: DEXAMETHASONE
     Dosage: 10 MG, ONCE
     Route: 042
     Dates: start: 20210914, end: 20210914
  26. DEXAMETHASONE [Concomitant]
     Active Substance: DEXAMETHASONE
     Dosage: 10 MG, ONCE
     Route: 042
     Dates: start: 20210930, end: 20210930
  27. DEXAMETHASONE [Concomitant]
     Active Substance: DEXAMETHASONE
     Dosage: 10 MG, ONCE
     Route: 042
     Dates: start: 20211019, end: 20211019
  28. DEXAMETHASONE [Concomitant]
     Active Substance: DEXAMETHASONE
     Dosage: 10 MG, ONCE
     Route: 042
     Dates: start: 20211102, end: 20211102
  29. ALROXI [Concomitant]
     Indication: Prophylaxis
     Dosage: 1 VIAL, ONCE
     Route: 042
     Dates: start: 20210525, end: 20210525
  30. ALROXI [Concomitant]
     Dosage: 1 VIAL, ONCE
     Route: 042
     Dates: start: 20210608, end: 20210608
  31. ALROXI [Concomitant]
     Dosage: 1 VIAL, ONCE
     Route: 042
     Dates: start: 20210622, end: 20210622
  32. ALROXI [Concomitant]
     Dosage: 1 VIAL, ONCE
     Route: 042
     Dates: start: 20210706, end: 20210706
  33. ALROXI [Concomitant]
     Dosage: 1 VIAL, ONCE
     Route: 042
     Dates: start: 20210720, end: 20210720
  34. ALROXI [Concomitant]
     Dosage: 1 VIAL, ONCE
     Route: 042
     Dates: start: 20210803, end: 20210803
  35. ALROXI [Concomitant]
     Dosage: 1 VIAL, ONCE
     Route: 042
     Dates: start: 20210817, end: 20210817
  36. ALROXI [Concomitant]
     Dosage: 1 VIAL, ONCE
     Route: 042
     Dates: start: 20210831, end: 20210831
  37. ALROXI [Concomitant]
     Dosage: 1 VIAL, ONCE
     Route: 042
     Dates: start: 20210914, end: 20210914
  38. ALROXI [Concomitant]
     Dosage: 1 VIAL, ONCE
     Route: 042
     Dates: start: 20210930, end: 20210930
  39. ALROXI [Concomitant]
     Dosage: 1 VIAL, ONCE
     Route: 042
     Dates: start: 20211019, end: 20211019
  40. ALROXI [Concomitant]
     Dosage: 1 VIAL, ONCE
     Route: 042
     Dates: start: 20211102, end: 20211102
  41. SAMA TANTUM [Concomitant]
     Indication: Prophylaxis
     Dosage: 100 ML, PRN
     Route: 048
     Dates: start: 20210527, end: 20210831
  42. ACETAMINOPHEN\TRAMADOL [Concomitant]
     Active Substance: ACETAMINOPHEN\TRAMADOL
     Indication: Abdominal pain
     Dosage: 1 TAB, PRN
     Route: 048
     Dates: start: 20210608, end: 20211011
  43. ZOLPIDEM TARTRATE [Concomitant]
     Active Substance: ZOLPIDEM TARTRATE
     Indication: Insomnia
     Dosage: 1 TAB, PRN
     Route: 048
     Dates: start: 20210608, end: 20210706
  44. NAXOZOLE [Concomitant]
     Indication: Contusion
     Dosage: 1 TAB, BID
     Route: 048
     Dates: start: 20210701, end: 20210703
  45. TRASPEN [Concomitant]
     Indication: Contusion
     Dosage: 1 TAB, BID
     Route: 048
     Dates: start: 20210701, end: 20210703
  46. DARBEPOETIN ALFA [Concomitant]
     Active Substance: DARBEPOETIN ALFA
     Indication: Anaemia
     Dosage: 3 SYRG, ONCE
     Route: 042
     Dates: start: 20210803, end: 20210803
  47. DARBEPOETIN ALFA [Concomitant]
     Active Substance: DARBEPOETIN ALFA
     Dosage: 3 SYRG, ONCE
     Route: 042
     Dates: start: 20210831, end: 20210831
  48. DARBEPOETIN ALFA [Concomitant]
     Active Substance: DARBEPOETIN ALFA
     Dosage: 3 SYRG, ONCE
     Route: 042
     Dates: start: 20210930, end: 20210930
  49. URSODIOL [Concomitant]
     Active Substance: URSODIOL
     Indication: Prophylaxis
     Dosage: 1 TAB, TID
     Route: 048
     Dates: start: 20210817, end: 20211011
  50. LEVOFLOXACIN [Concomitant]
     Active Substance: LEVOFLOXACIN
     Indication: Interstitial lung disease
     Dosage: 1 TAB, QD
     Route: 048
     Dates: start: 20210915, end: 20210922
  51. DAIHAN ATROPINE SULFATE [Concomitant]
     Indication: Prophylaxis
     Dosage: 1 AMP, ONCE
     Route: 030
     Dates: start: 20210924, end: 20210924
  52. DAIHAN ATROPINE SULFATE [Concomitant]
     Dosage: 1 AMP, ONCE
     Route: 030
     Dates: start: 20211124, end: 20211124
  53. JEIL PETHIDINE [Concomitant]
     Indication: Prophylaxis
     Dosage: 0.5 AMP, ONCE
     Route: 030
     Dates: start: 20210924, end: 20210924
  54. JEIL PETHIDINE [Concomitant]
     Dosage: 0.5 AMP, ONCE
     Route: 030
     Dates: start: 20211124, end: 20211124
  55. CEFDITOREN PIVOXIL [Concomitant]
     Active Substance: CEFDITOREN PIVOXIL
     Indication: Interstitial lung disease
     Dosage: 1 TAB, TID
     Route: 048
     Dates: start: 20210924, end: 20211011
  56. CEFDITOREN PIVOXIL [Concomitant]
     Active Substance: CEFDITOREN PIVOXIL
     Dosage: 1 TAB, TID
     Route: 048
     Dates: start: 20211122, end: 20211122
  57. GASTER [Concomitant]
     Active Substance: FAMOTIDINE
     Indication: Prophylaxis
     Dosage: 1 TAB, BID
     Route: 048
     Dates: start: 20210924, end: 20211122
  58. PREDNISOLONE [Concomitant]
     Active Substance: PREDNISOLONE
     Indication: Interstitial lung disease
     Dosage: 1 TAB, BID
     Route: 048
     Dates: start: 20210924, end: 20211011
  59. PREDNISOLONE [Concomitant]
     Active Substance: PREDNISOLONE
     Dosage: 1 TAB, BID
     Route: 048
     Dates: start: 20211012, end: 20211112
  60. PREDNISOLONE [Concomitant]
     Active Substance: PREDNISOLONE
     Dosage: 1 TAB, BID
     Route: 048
     Dates: start: 20211113, end: 20211123
  61. AMOXICILLIN [Concomitant]
     Active Substance: AMOXICILLIN
     Indication: Gingivitis
     Dosage: 1 CAP, TID
     Route: 048
     Dates: start: 20210925, end: 20210927
  62. BYDOXIL [Concomitant]
     Indication: Vaginal haemorrhage
     Dosage: 1 TAB, BID
     Route: 048
     Dates: start: 20211004, end: 20211009
  63. DICLOMED [DICLOFENAC] [Concomitant]
     Indication: Stomatitis
     Dosage: 1 BOTTLE, PRN
     Route: 048
     Dates: start: 20211012, end: 20211019
  64. AMOBUROFEN [Concomitant]
     Indication: Pyrexia
     Dosage: 1 VIAL, ONCE
     Route: 042
     Dates: start: 20211122, end: 20211122
  65. PIPERACILLIN SODIUM\TAZOBACTAM SODIUM [Concomitant]
     Active Substance: PIPERACILLIN SODIUM\TAZOBACTAM SODIUM
     Indication: Pyrexia
     Dosage: 1 VIAL, ONCE
     Route: 042
     Dates: start: 20211122, end: 20211122
  66. PIPERACILLIN SODIUM\TAZOBACTAM SODIUM [Concomitant]
     Active Substance: PIPERACILLIN SODIUM\TAZOBACTAM SODIUM
     Dosage: 1 VIAL, ONCE
     Route: 042
     Dates: start: 20211123
  67. ACETPHEN PREMIX [Concomitant]
     Indication: Pyrexia
     Dosage: 1 BAG, ONCE
     Route: 042
     Dates: start: 20211122, end: 20211122
  68. EXAD [Concomitant]
     Indication: Pyrexia
     Dosage: 1 TAB, BID
     Route: 048
     Dates: start: 20211122, end: 20211122
  69. SUSPEN 8 HOURS ER [Concomitant]
     Indication: Pyrexia
     Dosage: 1 TAB, TID
     Route: 048
     Dates: start: 20211122, end: 20211122
  70. ZITHROMAX [Concomitant]
     Active Substance: AZITHROMYCIN DIHYDRATE
     Indication: Prophylaxis
     Dosage: 2 TAB, TID
     Route: 048
     Dates: start: 20211122, end: 20211122
  71. DISOLRIN [METHYLPREDNISOLONE] [Concomitant]
     Indication: Dyspnoea
     Dosage: 20 MG, QD
     Route: 048
     Dates: start: 20211123, end: 20211123
  72. DISOLRIN [METHYLPREDNISOLONE] [Concomitant]
     Dosage: 20 MG, QD
     Route: 048
     Dates: start: 20211124
  73. LEVOFLOXACIN [Concomitant]
     Active Substance: LEVOFLOXACIN
     Indication: Dyspnoea
     Dosage: 1 BOTTLE, QD
     Route: 042
     Dates: start: 20211123
  74. DONG A GASTER [Concomitant]
     Indication: Dyspnoea
     Dosage: 1 VIAL, QD
     Route: 042
     Dates: start: 20211123

REACTIONS (5)
  - Dyspnoea [Recovered/Resolved]
  - Pneumocystis jirovecii pneumonia [Unknown]
  - Pyrexia [Unknown]
  - Headache [Unknown]
  - Off label use [Unknown]

NARRATIVE: CASE EVENT DATE: 20211122
